FAERS Safety Report 6761413-6 (Version None)
Quarter: 2010Q2

REPORT INFORMATION
  Report Type: 
  Country: None (occurrence: None)
  Receive Date: 20100608
  Receipt Date: 20100531
  Transmission Date: 20101027
  Serious: Yes (Other)
  Sender: FDA-Public Use
  Company Number: JP-ROCHE-686816

PATIENT
  Age: 80 Year
  Sex: Male

DRUGS (6)
  1. AVASTIN [Suspect]
     Indication: COLON CANCER METASTATIC
     Route: 041
  2. IRINOTECAN HYDROCHLORIDE [Concomitant]
     Dosage: NOTE: W AND X2-4/SIX CYCLES
     Route: 041
  3. LEUCOVORIN CALCIUM [Concomitant]
     Route: 041
  4. LEUCOVORIN CALCIUM [Concomitant]
     Dosage: NOTE: W AND X2-4/SIX CYCLES.
     Route: 041
  5. FLUOROURACIL [Concomitant]
     Route: 041
  6. FLUOROURACIL [Concomitant]
     Dosage: NOTE: W AND X2-4/SIX CYCLES.
     Route: 041

REACTIONS (1)
  - HEPATIC NEOPLASM MALIGNANT [None]
